FAERS Safety Report 19183854 (Version 1)
Quarter: 2021Q2

REPORT INFORMATION
  Report Type: Spontaneous
  Country: US (occurrence: US)
  Receive Date: 20210426
  Receipt Date: 20210426
  Transmission Date: 20210717
  Serious: Yes (Hospitalization, Other)
  Sender: FDA-Public Use
  Company Number: None

PATIENT
  Age: 76 Year
  Sex: Male
  Weight: 82 kg

DRUGS (12)
  1. MELOXICAM. [Concomitant]
     Active Substance: MELOXICAM
  2. ATORVASTATIN [Concomitant]
     Active Substance: ATORVASTATIN
  3. CYANOCOBALAMIN. [Concomitant]
     Active Substance: CYANOCOBALAMIN
  4. CEFEPIME [Suspect]
     Active Substance: CEFEPIME HYDROCHLORIDE
     Indication: INFECTION
     Route: 042
     Dates: start: 20201113, end: 20201201
  5. ASCORBIC ACID. [Concomitant]
     Active Substance: ASCORBIC ACID
  6. OXYCODONE [Concomitant]
     Active Substance: OXYCODONE
  7. TRAMADOL. [Concomitant]
     Active Substance: TRAMADOL
  8. CARVEDILOL. [Concomitant]
     Active Substance: CARVEDILOL
  9. ASPIRIN. [Concomitant]
     Active Substance: ASPIRIN
  10. PREGABALIN. [Concomitant]
     Active Substance: PREGABALIN
  11. EPROSARTAN/HCTZ [Concomitant]
  12. TESTEROSTERONE [Concomitant]

REACTIONS (6)
  - Mental status changes [None]
  - Myoclonus [None]
  - Azotaemia [None]
  - Neurotoxicity [None]
  - Tubulointerstitial nephritis [None]
  - Dialysis [None]

NARRATIVE: CASE EVENT DATE: 20201201
